FAERS Safety Report 4658045-2 (Version None)
Quarter: 2005Q2

REPORT INFORMATION
  Report Type: 
  Country: None (occurrence: None)
  Receive Date: 20050510
  Receipt Date: 20040817
  Transmission Date: 20051028
  Serious: Yes (Hospitalization)
  Sender: FDA-Public Use
  Company Number: GB-MERCK-0408GBR00154

PATIENT
  Age: 65 Year
  Sex: Female

DRUGS (11)
  1. ETIDRONATE DISODIUM [Suspect]
     Indication: OSTEOPOROSIS
     Route: 048
     Dates: end: 20040720
  2. VIOXX [Suspect]
     Indication: OSTEOARTHRITIS
     Route: 048
     Dates: end: 20040720
  3. LANSOPRAZOLE [Concomitant]
     Route: 048
     Dates: end: 20040718
  4. LANSOPRAZOLE [Concomitant]
     Route: 048
     Dates: start: 20040719
  5. CALCIUM CARBONATE AND CHOLECALCIFEROL [Concomitant]
     Indication: OSTEOPOROSIS
     Route: 048
  6. HYDROXYZINE HYDROCHLORIDE [Concomitant]
     Route: 048
  7. THIAMINE [Concomitant]
     Route: 048
  8. ATENOLOL [Concomitant]
     Route: 065
  9. ACETAMINOPHEN AND CODEINE PHOSPHATE [Concomitant]
     Route: 065
  10. FOLIC ACID [Concomitant]
     Route: 065
  11. AMLODIPINE BESYLATE [Concomitant]
     Route: 065

REACTIONS (6)
  - ABDOMINAL PAIN UPPER [None]
  - HAEMATEMESIS [None]
  - HAEMOGLOBIN DECREASED [None]
  - HIATUS HERNIA [None]
  - OESOPHAGITIS [None]
  - PORTAL HYPERTENSIVE GASTROPATHY [None]
